FAERS Safety Report 6670458-6 (Version None)
Quarter: 2010Q2

REPORT INFORMATION
  Report Type: 
  Country: None (occurrence: None)
  Receive Date: 20100407
  Receipt Date: 20100401
  Transmission Date: 20101027
  Serious: Yes (Hospitalization)
  Sender: FDA-Public Use
  Company Number: US-BIOGENIDEC-2010BI007295

PATIENT
  Age: 66 Year
  Sex: Male

DRUGS (3)
  1. TYSABRI [Suspect]
     Indication: MULTIPLE SCLEROSIS
     Route: 042
     Dates: start: 20070515, end: 20100209
  2. BACLOFEN [Concomitant]
  3. LUNESTA [Concomitant]

REACTIONS (2)
  - MULTIPLE SCLEROSIS [None]
  - PNEUMONIA [None]
